FAERS Safety Report 18507084 (Version 2)
Quarter: 2020Q4

REPORT INFORMATION
  Report Type: Report from Study
  Country: CO (occurrence: CO)
  Receive Date: 20201116
  Receipt Date: 20201217
  Transmission Date: 20210114
  Serious: Yes (Hospitalization)
  Sender: FDA-Public Use
  Company Number: CO-ASTELLAS-2020US016687

PATIENT
  Age: 52 Year
  Sex: Male
  Weight: 61 kg

DRUGS (5)
  1. TACROLIMUS. [Suspect]
     Active Substance: TACROLIMUS
     Dosage: 6 MG (1 CAPSULE OF 1MG AND 1 CAPSULE OF 5MG) ONCE DAILY
     Route: 048
     Dates: start: 20200415
  2. TACROLIMUS. [Suspect]
     Active Substance: TACROLIMUS
     Dosage: 6 MG (1 CAPSULE OF 1MG AND 1 CAPSULE OF 5MG) ONCE DAILY
     Route: 048
     Dates: start: 202010
  3. MYCOPHENOLATE [Concomitant]
     Active Substance: MYCOPHENOLIC ACID
     Indication: RENAL TRANSPLANT
     Route: 048
  4. TACROLIMUS. [Suspect]
     Active Substance: TACROLIMUS
     Dosage: 12 MG, EVERY OTHER DAY (2 CAPSULES OF 1MG AND 2 CAPSULES OF 5MG)
     Route: 048
     Dates: start: 202007
  5. TACROLIMUS. [Suspect]
     Active Substance: TACROLIMUS
     Indication: RENAL TRANSPLANT
     Dosage: 12 MG (2 CAPSULES OF 1MG AND 2 CAPSULES OF 5MG) ONCE DAILY
     Route: 048
     Dates: start: 20170813, end: 20200414

REACTIONS (6)
  - Hypertension [Recovered/Resolved]
  - Alopecia [Not Recovered/Not Resolved]
  - Urinary tract inflammation [Not Recovered/Not Resolved]
  - Vomiting [Recovered/Resolved]
  - Decreased appetite [Recovered/Resolved]
  - Off label use [Unknown]

NARRATIVE: CASE EVENT DATE: 202004
